FAERS Safety Report 8800355 (Version 2)
Quarter: 2012Q4

REPORT INFORMATION
  Report Type: 
  Country: TH (occurrence: TH)
  Receive Date: 20120921
  Receipt Date: 20120925
  Transmission Date: 20130627
  Serious: Yes (Hospitalization)
  Sender: FDA-Public Use
  Company Number: PHHY2012TH080712

PATIENT
  Age: 60 Year
  Sex: Female

DRUGS (1)
  1. ACLASTA [Suspect]
     Route: 042
     Dates: start: 20120911

REACTIONS (7)
  - Nasopharyngitis [Unknown]
  - Pyrexia [Unknown]
  - Rash [Recovering/Resolving]
  - Erythema [Unknown]
  - Oedema peripheral [Unknown]
  - Pain [Unknown]
  - Drug hypersensitivity [Unknown]
